FAERS Safety Report 7818985-X (Version None)
Quarter: 2011Q4

REPORT INFORMATION
  Report Type: 
  Country: None (occurrence: None)
  Receive Date: 20111012
  Receipt Date: 20110930
  Transmission Date: 20120403
  Serious: Yes (Hospitalization, Other)
  Sender: FDA-Public Use
  Company Number: AUR-APL-2010-00654

PATIENT
  Age: 44 Year
  Sex: Male

DRUGS (8)
  1. ABACAVIR [Suspect]
     Indication: HIV INFECTION
     Dates: start: 20040201
  2. DIDANOSINE [Suspect]
     Indication: HIV INFECTION
     Dates: start: 20020801
  3. NELFINAVIR MESYLATE [Suspect]
     Indication: HIV INFECTION
     Dates: start: 20001001
  4. LOPINAVIR (LOPINAVIR) [Suspect]
     Indication: HIV INFECTION
     Dates: start: 20040201
  5. RITONAVIR [Suspect]
     Indication: HIV INFECTION
     Dates: start: 20040201
  6. LAMIVUDINE [Suspect]
     Indication: HIV INFECTION
     Dates: start: 20001001
  7. ZIDOVUDINE [Suspect]
     Indication: HIV INFECTION
     Dates: start: 20020801
  8. STAVUDINE [Suspect]
     Indication: HIV INFECTION
     Dates: start: 20001001

REACTIONS (5)
  - HAEMOGLOBIN DECREASED [None]
  - OSTEONECROSIS [None]
  - MOBILITY DECREASED [None]
  - ECONOMIC PROBLEM [None]
  - BLOOD TRIGLYCERIDES INCREASED [None]
